FAERS Safety Report 21286373 (Version 1)
Quarter: 2022Q3

REPORT INFORMATION
  Report Type: Spontaneous
  Country: GB (occurrence: GB)
  Receive Date: 20220902
  Receipt Date: 20220902
  Transmission Date: 20221027
  Serious: Yes (Hospitalization)
  Sender: FDA-Public Use
  Company Number: GB-BAYER-2022P012332

PATIENT
  Sex: Male

DRUGS (1)
  1. RADIUM RA-223 DICHLORIDE [Suspect]
     Active Substance: RADIUM RA-223 DICHLORIDE

REACTIONS (1)
  - Sepsis [None]
